FAERS Safety Report 16372839 (Version 1)
Quarter: 2019Q2

REPORT INFORMATION
  Report Type: Spontaneous
  Country: AU (occurrence: AU)
  Receive Date: 20190530
  Receipt Date: 20190530
  Transmission Date: 20190711
  Serious: Yes (Hospitalization)
  Sender: FDA-Public Use
  Company Number: AU-MYLANLABS-2019M1050995

PATIENT
  Age: 28 Year
  Sex: Male

DRUGS (7)
  1. ZUCLOPENTHIXOL [Suspect]
     Active Substance: ZUCLOPENTHIXOL
     Indication: REBOUND PSYCHOSIS
     Route: 065
  2. AMISULPRIDE [Suspect]
     Active Substance: AMISULPRIDE
     Indication: REBOUND PSYCHOSIS
     Route: 065
  3. OLANZAPINE. [Suspect]
     Active Substance: OLANZAPINE
     Indication: REBOUND PSYCHOSIS
     Route: 065
  4. CARBAMAZEPINE. [Suspect]
     Active Substance: CARBAMAZEPINE
     Indication: REBOUND PSYCHOSIS
     Route: 065
  5. PERICYAZINE [Suspect]
     Active Substance: PERICIAZINE
     Indication: REBOUND PSYCHOSIS
     Route: 065
  6. QUETIAPINE. [Suspect]
     Active Substance: QUETIAPINE
     Indication: REBOUND PSYCHOSIS
     Route: 065
  7. FLUPENTHIXOL                       /00109701/ [Suspect]
     Active Substance: FLUPENTIXOL
     Indication: REBOUND PSYCHOSIS
     Route: 065

REACTIONS (1)
  - Drug ineffective [Unknown]
